FAERS Safety Report 8805661 (Version 3)
Quarter: 2012Q4

REPORT INFORMATION
  Report Type: 
  Country: FR (occurrence: FR)
  Receive Date: 20120925
  Receipt Date: 20121018
  Transmission Date: 20130627
  Serious: Yes (Life-Threatening, Hospitalization, Other)
  Sender: FDA-Public Use
  Company Number: FR-AMGEN-FRASP2012059316

PATIENT
  Age: 62 Year
  Sex: Male
  Weight: 86 kg

DRUGS (7)
  1. ENBREL [Suspect]
     Indication: RHEUMATOID ARTHRITIS
     Dosage: 50 mg, weekly
     Route: 058
     Dates: start: 200706, end: 201208
  2. ENBREL [Suspect]
     Dosage: 25 mg,(frequency unspecified)
     Dates: start: 201208
  3. ENBREL [Suspect]
     Dosage: UNK
  4. CELEBREX [Suspect]
     Indication: RHEUMATOID ARTHRITIS
     Dosage: 200 mg, 1x/day
     Dates: start: 200511, end: 20120817
  5. PARIET [Concomitant]
     Indication: HIATUS HERNIA
     Dosage: 20 mg, 1x/day
     Route: 048
  6. DAFALGAN [Concomitant]
     Indication: PAIN
     Dosage: 2 to 4 g/ day
     Route: 048
  7. STILNOX [Concomitant]
     Indication: INSOMNIA
     Dosage: UNK
     Route: 048

REACTIONS (7)
  - Myocardial infarction [Recovering/Resolving]
  - Cardiac arrest [Recovered/Resolved]
  - Ventricular fibrillation [Recovered/Resolved]
  - Coronary artery occlusion [Recovering/Resolving]
  - Coronary artery stenosis [Recovering/Resolving]
  - Respiratory arrest [Recovered/Resolved]
  - Chest pain [Unknown]
